FAERS Safety Report 8314439-5 (Version None)
Quarter: 2012Q2

REPORT INFORMATION
  Report Type: 
  Country: None (occurrence: None)
  Receive Date: 20120426
  Receipt Date: 20120417
  Transmission Date: 20120825
  Serious: Yes (Other)
  Sender: FDA-Public Use
  Company Number: US-ASTRAZENECA-2012SE08918

PATIENT
  Age: 31015 Day
  Sex: Female
  Weight: 63.5 kg

DRUGS (1)
  1. FASLODEX [Suspect]
     Indication: BREAST CANCER
     Route: 030
     Dates: start: 20120109, end: 20120109

REACTIONS (1)
  - DEEP VEIN THROMBOSIS [None]
